FAERS Safety Report 9648597 (Version 1)
Quarter: 2013Q4

REPORT INFORMATION
  Report Type: Spontaneous
  Country: US (occurrence: None)
  Receive Date: 20131025
  Receipt Date: 20131025
  Transmission Date: 20140711
  Serious: No
  Sender: FDA-Public Use
  Company Number: None

PATIENT
  Sex: Female

DRUGS (8)
  1. MINOCYCLINE [Suspect]
     Indication: BACTERIAL INFECTION
     Route: 048
     Dates: start: 20130808, end: 20130907
  2. RIFAMPIN [Concomitant]
  3. AZITHROMYCIN [Concomitant]
  4. SYNTHROID [Concomitant]
  5. AMITRIPTYLINE [Concomitant]
  6. MILK THISTLE [Concomitant]
  7. B 12 [Concomitant]
  8. B6 [Concomitant]

REACTIONS (1)
  - Dysgeusia [None]
